FAERS Safety Report 6337535-0 (Version None)
Quarter: 2009Q3

REPORT INFORMATION
  Report Type: 
  Country: None (occurrence: None)
  Receive Date: 20090901
  Receipt Date: 20090901
  Transmission Date: 20100115
  Serious: Yes (Other)
  Sender: FDA-Public Use
  Company Number: None

PATIENT
  Sex: Female
  Weight: 125.4 kg

DRUGS (5)
  1. DOXORUBICIN HCL [Suspect]
     Indication: BREAST CANCER
     Dosage: 132MG EVERY 21 DAYS X 4 IV
     Route: 042
     Dates: start: 20090813, end: 20090813
  2. CYTOXAN [Suspect]
     Indication: BREAST CANCER
     Dosage: 1320MG EVERY 21 DAYS X 4 IV DRIP
     Route: 041
     Dates: start: 20090813, end: 20090813
  3. ASPIRIN [Concomitant]
  4. METOPROLOL [Concomitant]
  5. LASIX [Concomitant]

REACTIONS (2)
  - NEUTROPHIL COUNT DECREASED [None]
  - WHITE BLOOD CELL COUNT DECREASED [None]
